FAERS Safety Report 4865801-4 (Version None)
Quarter: 2005Q4

REPORT INFORMATION
  Report Type: 
  Country: None (occurrence: None)
  Receive Date: 20051220
  Receipt Date: 20051208
  Transmission Date: 20060501
  Serious: Yes (Hospitalization)
  Sender: FDA-Public Use
  Company Number: WAES 0512NLD00009

PATIENT
  Age: 73 Year
  Sex: Male

DRUGS (7)
  1. COZAAR [Suspect]
     Indication: CARDIAC FAILURE CONGESTIVE
  2. BISOPROLOL FUMARATE [Concomitant]
  3. CARBASPIRIN CALCIUM [Concomitant]
  4. FUROSEMIDE [Concomitant]
  5. INSULIN [Concomitant]
  6. SIMVASTATN [Concomitant]
  7. SPIRONOLACTONE [Concomitant]

REACTIONS (2)
  - LOCALISED INFECTION [None]
  - TOE AMPUTATION [None]
